FAERS Safety Report 4951673-6 (Version None)
Quarter: 2006Q1

REPORT INFORMATION
  Report Type: 
  Country: None (occurrence: None)
  Receive Date: 20060323
  Receipt Date: 20060313
  Transmission Date: 20060701
  Serious: Yes (Other)
  Sender: FDA-Public Use
  Company Number: NZ-GLAXOSMITHKLINE-B0415827A

PATIENT
  Age: 65 Year
  Sex: Female

DRUGS (2)
  1. CARTIA TABLETS [Suspect]
     Route: 048
     Dates: start: 20050301, end: 20060307
  2. ACCUPRIL [Concomitant]
     Route: 065

REACTIONS (1)
  - CEREBROVASCULAR ACCIDENT [None]
